FAERS Safety Report 4925054-5 (Version None)
Quarter: 2006Q1

REPORT INFORMATION
  Report Type: 
  Country: None (occurrence: None)
  Receive Date: 20060222
  Receipt Date: 20060209
  Transmission Date: 20060701
  Serious: Yes (Other)
  Sender: FDA-Public Use
  Company Number: 200601399

PATIENT
  Age: 58 Year
  Sex: Female

DRUGS (1)
  1. PRED-G [Suspect]
     Indication: EYE IRRITATION
     Dosage: 1 DROP BID EYE

REACTIONS (4)
  - OEDEMA MOUTH [None]
  - RASH GENERALISED [None]
  - RASH PRURITIC [None]
  - SWELLING FACE [None]
